FAERS Safety Report 23604600 (Version 1)
Quarter: 2024Q1

REPORT INFORMATION
  Report Type: Spontaneous
  Country: FR (occurrence: FR)
  Receive Date: 20240307
  Receipt Date: 20240307
  Transmission Date: 20240410
  Serious: Yes (Life-Threatening)
  Sender: FDA-Public Use
  Company Number: None

PATIENT
  Age: 78 Year
  Sex: Male
  Weight: 70 kg

DRUGS (12)
  1. DAPTOMYCIN [Suspect]
     Active Substance: DAPTOMYCIN
     Indication: Postoperative wound infection
     Dosage: 500 MG, POWDER FOR SOLUTION FOR INJECTION/INFUSION
     Dates: start: 20231211, end: 20231214
  2. FENTANYL [Concomitant]
     Active Substance: FENTANYL\FENTANYL CITRATE
  3. ZOPICLONE [Concomitant]
     Active Substance: ZOPICLONE
  4. KARDEGIC [Concomitant]
     Active Substance: ASPIRIN DL-LYSINE
  5. OXAZEPAM [Concomitant]
     Active Substance: OXAZEPAM
  6. POLYETHYLENE GLYCOLS [Concomitant]
     Active Substance: POLYETHYLENE GLYCOLS
  7. RAMIPRIL [Concomitant]
     Active Substance: RAMIPRIL
  8. CEFEPIME [Concomitant]
     Active Substance: CEFEPIME HYDROCHLORIDE
     Indication: Postoperative wound infection
     Dosage: 2 G, POWDER FOR SOLUTION FOR INJECTION/INFUSION (IV)
     Dates: start: 20231211
  9. TRAMADOL HYDROCHLORIDE [Concomitant]
     Active Substance: TRAMADOL HYDROCHLORIDE
  10. ACETAMINOPHEN [Concomitant]
     Active Substance: ACETAMINOPHEN
  11. DAPTOMYCIN [Suspect]
     Active Substance: DAPTOMYCIN
     Indication: Postoperative wound infection
     Dosage: 500 MG, POWDER FOR SOLUTION FOR INJECTION/INFUSION
     Dates: start: 20231201, end: 20231211
  12. CEFEPIME [Concomitant]
     Active Substance: CEFEPIME HYDROCHLORIDE
     Indication: Postoperative wound infection
     Dosage: 2 G, POWDER FOR SOLUTION FOR INJECTION/INFUSION (IV); 2G*2/DAY
     Dates: start: 20231201, end: 20231211

REACTIONS (1)
  - Lung disorder [Recovering/Resolving]

NARRATIVE: CASE EVENT DATE: 20231213
